FAERS Safety Report 11164640 (Version 1)
Quarter: 2015Q2

REPORT INFORMATION
  Report Type: Report from Study
  Country: BR (occurrence: BR)
  Receive Date: 20150604
  Receipt Date: 20150604
  Transmission Date: 20150821
  Serious: Yes (Hospitalization, Other)
  Sender: FDA-Public Use
  Company Number: BR-ABBVIE-09P-020-0568088-00

PATIENT
  Age: 59 Year
  Sex: Male
  Weight: 68 kg

DRUGS (6)
  1. PREDNISONE/PIROXICAM/FAMOTIDINE [Concomitant]
     Indication: PAIN
     Dosage: COMBINED FORMULA CONSISTING OF :PREDNISONE/PIROXICAM/FAMOTIDINE
     Route: 048
  2. PREDNISONE/PIROXICAM/FAMOTIDINE [Concomitant]
     Indication: RHEUMATOID ARTHRITIS
     Dosage: COMBINED FORMULA CONSISTING OF :PREDNISONE/PIROXICAM/FAMOTIDINE
     Route: 048
     Dates: start: 1995
  3. PIROXICAM/FAMOTIDINE [Concomitant]
     Indication: RHEUMATOID ARTHRITIS
     Route: 048
     Dates: start: 1995
  4. PIROXICAM/FAMOTIDINE [Concomitant]
     Indication: PAIN
  5. METHOTREXATE [Concomitant]
     Active Substance: METHOTREXATE
     Indication: ARTHRITIS
     Route: 048
     Dates: start: 2014
  6. HUMIRA [Suspect]
     Active Substance: ADALIMUMAB
     Indication: RHEUMATOID ARTHRITIS
     Route: 058
     Dates: start: 2006

REACTIONS (7)
  - Inguinal hernia [Recovered/Resolved]
  - Inflammation [Recovered/Resolved]
  - Localised infection [Recovered/Resolved]
  - Skin discolouration [Recovered/Resolved]
  - Osteoporosis [Not Recovered/Not Resolved]
  - Thrombosis [Recovered/Resolved]
  - Poisoning [Unknown]

NARRATIVE: CASE EVENT DATE: 2008
